FAERS Safety Report 6158390-8 (Version None)
Quarter: 2009Q2

REPORT INFORMATION
  Report Type: 
  Country: None (occurrence: None)
  Receive Date: 20090417
  Receipt Date: 20090414
  Transmission Date: 20091009
  Serious: Yes (Hospitalization)
  Sender: FDA-Public Use
  Company Number: FR-WYE-G03499309

PATIENT
  Sex: Male
  Weight: 33 kg

DRUGS (8)
  1. ADVIL [Suspect]
     Indication: PYREXIA
     Route: 048
     Dates: start: 20090309, end: 20090312
  2. ADVIL [Suspect]
     Indication: OROPHARYNGEAL PAIN
  3. DOLIPRANE [Concomitant]
     Indication: PYREXIA
     Dosage: 500 MG ONE TO TWO TIMES DAILY
     Route: 048
     Dates: start: 20090309, end: 20090312
  4. DOLIPRANE [Concomitant]
     Indication: OROPHARYNGEAL PAIN
  5. AMOXICILLIN [Concomitant]
     Indication: OROPHARYNGEAL PAIN
     Route: 048
     Dates: start: 20090310, end: 20090312
  6. AMOXICILLIN [Concomitant]
     Indication: PYREXIA
  7. AERIUS [Suspect]
     Indication: PYREXIA
     Route: 048
     Dates: start: 20090309, end: 20090312
  8. AERIUS [Suspect]
     Indication: OROPHARYNGEAL PAIN

REACTIONS (2)
  - CONDITION AGGRAVATED [None]
  - INFECTIOUS MONONUCLEOSIS [None]
